FAERS Safety Report 7210774-2 (Version None)
Quarter: 2010Q4

REPORT INFORMATION
  Report Type: 
  Country: None (occurrence: None)
  Receive Date: 20101223
  Receipt Date: 20101209
  Transmission Date: 20110411
  Serious: Yes (Congenital Anomaly)
  Sender: FDA-Public Use
  Company Number: 023267

PATIENT
  Sex: Male
  Weight: 4.2185 kg

DRUGS (2)
  1. KEPPRA [Suspect]
     Indication: EPILEPSY
     Dosage: (1000 MG TRANSPLACENTAL)
     Route: 064
     Dates: start: 20090101
  2. VITAMIN B12 + FOLIC ACID [Concomitant]

REACTIONS (2)
  - EPISPADIAS [None]
  - MATERNAL DRUGS AFFECTING FOETUS [None]
